FAERS Safety Report 5340416-2 (Version None)
Quarter: 2007Q2

REPORT INFORMATION
  Report Type: 
  Country: None (occurrence: None)
  Receive Date: 20070531
  Receipt Date: 20070518
  Transmission Date: 20071010
  Serious: Yes (Other)
  Sender: FDA-Public Use
  Company Number: AR-PFIZER INC-2007037981

PATIENT
  Sex: Male
  Weight: 98 kg

DRUGS (3)
  1. SUTENT [Suspect]
     Indication: RENAL CELL CARCINOMA STAGE UNSPECIFIED
     Route: 048
  2. NIFEDIPINE [Concomitant]
     Route: 048
  3. ATENOLOL [Concomitant]
     Route: 048

REACTIONS (3)
  - ANAEMIA [None]
  - HEPATIC ENZYME ABNORMAL [None]
  - YELLOW SKIN [None]
